FAERS Safety Report 24568541 (Version 1)
Quarter: 2024Q4

REPORT INFORMATION
  Report Type: Spontaneous
  Country: US (occurrence: US)
  Receive Date: 20241031
  Receipt Date: 20241031
  Transmission Date: 20250115
  Serious: Yes (Death)
  Sender: ROCHE
  Company Number: US-ROCHE-10000118698

PATIENT
  Age: 21 Year
  Sex: Male

DRUGS (9)
  1. RITUXIMAB [Suspect]
     Active Substance: RITUXIMAB
     Indication: Haemophagocytic lymphohistiocytosis
     Route: 065
  2. METHYLPREDNISOLONE [Concomitant]
     Active Substance: METHYLPREDNISOLONE
  3. ETOPOSIDE [Concomitant]
     Active Substance: ETOPOSIDE
  4. PREDNISONE [Concomitant]
     Active Substance: PREDNISONE
  5. CARBOPLATIN [Concomitant]
     Active Substance: CARBOPLATIN
  6. CYCLOPHOSPHAMIDE [Concomitant]
     Active Substance: CYCLOPHOSPHAMIDE
  7. EPIRUBICIN [Concomitant]
     Active Substance: EPIRUBICIN
  8. ONCOVIN [Concomitant]
     Active Substance: VINCRISTINE SULFATE
  9. IFOSFAMIDE [Concomitant]
     Active Substance: IFOSFAMIDE

REACTIONS (2)
  - Sepsis [Fatal]
  - Fungal infection [Unknown]
